FAERS Safety Report 12247549 (Version 1)
Quarter: 2016Q2

REPORT INFORMATION
  Report Type: Report from Study
  Country: US (occurrence: US)
  Receive Date: 20160407
  Receipt Date: 20160407
  Transmission Date: 20160815
  Serious: Yes (Hospitalization)
  Sender: FDA-Public Use
  Company Number: US-TAKEDA-TPA2012A02938

PATIENT
  Age: 67 Year
  Sex: Female
  Weight: 65.32 kg

DRUGS (7)
  1. PIOGLITAZONE. [Suspect]
     Active Substance: PIOGLITAZONE
     Route: 048
     Dates: start: 20080417
  2. PIOGLITAZONE. [Suspect]
     Active Substance: PIOGLITAZONE
     Route: 048
     Dates: start: 20080326, end: 20080416
  3. PLAVIX [Concomitant]
     Active Substance: CLOPIDOGREL BISULFATE
     Route: 048
  4. OMEPRAZOLE. [Concomitant]
     Active Substance: OMEPRAZOLE
     Route: 048
  5. PRISTIQ EXTENDED-RELEASE [Concomitant]
     Active Substance: DESVENLAFAXINE SUCCINATE
     Route: 048
  6. DALMENE [Concomitant]
     Route: 048
  7. PIOGLITAZONE. [Suspect]
     Active Substance: PIOGLITAZONE
     Indication: PRODUCT USED FOR UNKNOWN INDICATION
     Route: 048
     Dates: start: 20080214, end: 20080325

REACTIONS (1)
  - Lumbar vertebral fracture [Not Recovered/Not Resolved]

NARRATIVE: CASE EVENT DATE: 20110901
